FAERS Safety Report 21114711 (Version 1)
Quarter: 2022Q3

REPORT INFORMATION
  Report Type: Spontaneous
  Country: US (occurrence: US)
  Receive Date: 20220721
  Receipt Date: 20220721
  Transmission Date: 20221026
  Serious: No
  Sender: FDA-Public Use
  Company Number: US-MEDEXUS PHARMA, INC.-2022MED00023

PATIENT
  Age: 81 Year
  Sex: Female

DRUGS (5)
  1. RASUVO [Suspect]
     Active Substance: METHOTREXATE SODIUM
     Indication: Rheumatoid arthritis
     Dosage: ALTERNATES BETWEEN HER RIGHT AND LEFT THIGH, 1X/WEEK
     Dates: end: 20211227
  2. RASUVO [Suspect]
     Active Substance: METHOTREXATE SODIUM
     Indication: Rheumatoid arthritis
  3. FOLIC ACID [Concomitant]
     Active Substance: FOLIC ACID
  4. UNSPECIFIED PRODUCT FOR INDIGESTION [Concomitant]
  5. ORENCIA [Concomitant]
     Active Substance: ABATACEPT
     Dosage: 500 MG, 1X/MONTH

REACTIONS (2)
  - Pain [Not Recovered/Not Resolved]
  - Product dose omission issue [Not Recovered/Not Resolved]

NARRATIVE: CASE EVENT DATE: 20220103
